FAERS Safety Report 6823411-3 (Version None)
Quarter: 2010Q3

REPORT INFORMATION
  Report Type: 
  Country: None (occurrence: None)
  Receive Date: 20100708
  Receipt Date: 20100630
  Transmission Date: 20110219
  Serious: Yes (Death, Hospitalization)
  Sender: FDA-Public Use
  Company Number: GB-PFIZER INC-2009251624

PATIENT
  Age: 56 Year
  Sex: Female

DRUGS (5)
  1. ATORVASTATIN CALCIUM [Suspect]
     Indication: MYOCARDIAL ISCHAEMIA
     Dosage: 20 MG, UNK
     Route: 048
     Dates: start: 20070101, end: 20090420
  2. ACETYLSALICYLIC ACID [Concomitant]
     Indication: MYOCARDIAL ISCHAEMIA
     Dosage: 75 MG, UNK
     Route: 048
     Dates: start: 20010101
  3. BISOPROLOL [Concomitant]
     Indication: MYOCARDIAL ISCHAEMIA
     Dosage: 1.25 MG, UNK
     Route: 048
     Dates: start: 20010101
  4. DILTIAZEM [Concomitant]
     Indication: MYOCARDIAL ISCHAEMIA
     Dosage: 300 MG, UNK
     Route: 048
     Dates: start: 20010101
  5. FLUOXETINE [Concomitant]
     Indication: DEPRESSION
     Dosage: 40 MG, UNK
     Route: 048
     Dates: start: 20010101

REACTIONS (4)
  - CARDIAC ARREST [None]
  - DYSPNOEA [None]
  - MYOSITIS [None]
  - PNEUMONITIS [None]
